FAERS Safety Report 8634791 (Version 3)
Quarter: 2014Q1

REPORT INFORMATION
  Report Type: Spontaneous
  Country: US (occurrence: US)
  Receive Date: 20120626
  Receipt Date: 20140327
  Transmission Date: 20141002
  Serious: Yes (Hospitalization)
  Sender: FDA-Public Use
  Company Number: US-BAYER-2012-062041

PATIENT
  Age: 40 Year
  Sex: Female
  Weight: 76.64 kg

DRUGS (7)
  1. YASMIN [Suspect]
     Indication: ACNE
     Dosage: UNK
     Dates: start: 2003, end: 2008
  2. OCELLA [Suspect]
     Indication: ACNE
     Dosage: UNK
     Dates: start: 2003, end: 2008
  3. DROSPIRENONE W/ETHINYLESTRADIOL [Suspect]
  4. VALACICLOVIR [Concomitant]
     Dosage: 500 MG, BID
     Route: 048
     Dates: start: 20110506
  5. CLINDAMYCIN [Concomitant]
     Dosage: 150 MG, 2 CAPSULES IMMEDIATELY, THEN 1 CAPSULE THREE TIMES DAILY UNTIL ALL TAKEN
     Route: 048
     Dates: start: 20110602
  6. FLUCONAZOLE [Concomitant]
     Dosage: 150 MG, ONE TABLET DAILY
     Route: 048
     Dates: start: 20110623
  7. ACETAMINOPHEN [Concomitant]
     Indication: PYREXIA
     Dosage: 650 MG, EVERY 6 HOURS, PRN

REACTIONS (5)
  - Injury [None]
  - Deep vein thrombosis [None]
  - Pulmonary embolism [None]
  - Pain [None]
  - Pain [None]
